FAERS Safety Report 14141270 (Version 2)
Quarter: 2020Q4

REPORT INFORMATION
  Report Type: Report from Study
  Country: None (occurrence: CA)
  Receive Date: 20171030
  Receipt Date: 20201105
  Transmission Date: 20210113
  Serious: Yes (Hospitalization, Other)
  Sender: FDA-Public Use
  Company Number: CA-ABBVIE-17K-028-2143490-00

PATIENT
  Age: 62 Year
  Sex: Male

DRUGS (1)
  1. HUMIRA [Suspect]
     Active Substance: ADALIMUMAB
     Indication: ANKYLOSING SPONDYLITIS
     Route: 058

REACTIONS (11)
  - Cartilage atrophy [Not Recovered/Not Resolved]
  - Hypertension [Recovered/Resolved]
  - Limb asymmetry [Unknown]
  - Musculoskeletal disorder [Unknown]
  - Cerebrovascular accident [Recovering/Resolving]
  - Fall [Unknown]
  - Inguinal hernia [Recovered/Resolved]
  - Haemorrhage [Recovering/Resolving]
  - Walking aid user [Not Recovered/Not Resolved]
  - Arthralgia [Not Recovered/Not Resolved]
  - Lower limb fracture [Recovered/Resolved]

NARRATIVE: CASE EVENT DATE: 201705
